FAERS Safety Report 15170556 (Version 1)
Quarter: 2018Q3

REPORT INFORMATION
  Report Type: Report from Study
  Country: CA (occurrence: CA)
  Receive Date: 20180720
  Receipt Date: 20180720
  Transmission Date: 20181010
  Serious: Yes (Hospitalization)
  Sender: FDA-Public Use
  Company Number: CA-TEVA-2018-CA-922695

PATIENT
  Age: 52 Year
  Sex: Male

DRUGS (5)
  1. CINQAIR [Suspect]
     Active Substance: RESLIZUMAB
     Indication: ASTHMA
     Dosage: 315 MG Q4 WEEKS?LAST ADMINISTRATION DATE BEFORE THE ADVERSE EVENT: 05?JUN?2018
     Route: 042
     Dates: start: 20180508
  2. ALLEGRA [Concomitant]
     Active Substance: FEXOFENADINE HYDROCHLORIDE
  3. SYMBICORT [Concomitant]
     Active Substance: BUDESONIDE\FORMOTEROL FUMARATE DIHYDRATE
  4. BRICANYL [Concomitant]
     Active Substance: TERBUTALINE SULFATE
  5. PREDNISONE. [Concomitant]
     Active Substance: PREDNISONE

REACTIONS (5)
  - Swelling face [Unknown]
  - Eye swelling [Recovered/Resolved]
  - Cellulitis [Unknown]
  - Ocular hyperaemia [Unknown]
  - Infection [Recovered/Resolved]

NARRATIVE: CASE EVENT DATE: 20180629
